FAERS Safety Report 14152675 (Version 2)
Quarter: 2017Q4

REPORT INFORMATION
  Report Type: Spontaneous
  Country: FR (occurrence: FR)
  Receive Date: 20171102
  Receipt Date: 20171201
  Transmission Date: 20180321
  Serious: Yes (Hospitalization)
  Sender: FDA-Public Use
  Company Number: FR-PFIZER INC-2017463606

PATIENT
  Age: 49 Year
  Sex: Male

DRUGS (10)
  1. PREDNISOLONE. [Concomitant]
     Active Substance: PREDNISOLONE
     Indication: NEUROLOGICAL SYMPTOM
     Dosage: 80 MG, DAILY (FROM THE FIRST DAY OF INJECTION FOR A TOTAL DURATION OF 5 DAYS AND THEN REDUCED)
  2. PREDNISOLONE. [Concomitant]
     Active Substance: PREDNISOLONE
     Dosage: 80 MG, UNK (HIGH DOSE)
     Route: 048
  3. CYTARABINE. [Suspect]
     Active Substance: CYTARABINE
     Dosage: 50 MG, CYCLIC
     Route: 037
  4. CYTARABINE. [Suspect]
     Active Substance: CYTARABINE
     Dosage: 25 MG, CYCLIC
     Route: 037
  5. PREDNISOLONE. [Concomitant]
     Active Substance: PREDNISOLONE
     Dosage: 120 MG, UNK (ON THE DAY OF INJECTION)
  6. PREDNISOLONE. [Concomitant]
     Active Substance: PREDNISOLONE
     Dosage: 100 MG, UNK
     Route: 042
  7. PREDNISOLONE. [Concomitant]
     Active Substance: PREDNISOLONE
     Dosage: 80 MG, UNK (FOR THE NEXT 5 DAYS)
  8. CYTARABINE. [Suspect]
     Active Substance: CYTARABINE
     Indication: METASTASES TO MENINGES
     Dosage: 50 MG, CYCLIC
     Route: 037
  9. CYTARABINE. [Suspect]
     Active Substance: CYTARABINE
     Dosage: 25 MG, CYCLIC (27 DAYS AFTER THE FIRST INJECTION RATHER THAN 14 DAYS)
     Route: 037
  10. DABRAFENIB [Concomitant]
     Active Substance: DABRAFENIB
     Indication: METASTASES TO MENINGES
     Dosage: UNK

REACTIONS (1)
  - Meningitis chemical [Recovered/Resolved]
